FAERS Safety Report 6800718-7 (Version None)
Quarter: 2010Q2

REPORT INFORMATION
  Report Type: 
  Country: None (occurrence: None)
  Receive Date: 20100629
  Receipt Date: 20100617
  Transmission Date: 20101027
  Serious: Yes (Other)
  Sender: FDA-Public Use
  Company Number: FR-JNJFOC-20100606905

PATIENT
  Age: 15 Year
  Sex: Male

DRUGS (19)
  1. RISPERIDONE [Suspect]
     Indication: ABNORMAL BEHAVIOUR
     Dosage: 1-6 MG
     Route: 065
  2. HALOPERIDOL [Suspect]
     Indication: ABNORMAL BEHAVIOUR
     Dosage: 4-20 MG
     Route: 065
  3. OLANZAPINE [Suspect]
     Indication: ABNORMAL BEHAVIOUR
     Dosage: 10-20 MG
     Route: 065
  4. LOXAPINE [Suspect]
     Indication: ABNORMAL BEHAVIOUR
     Route: 065
  5. LITHIUM [Suspect]
     Indication: ANXIETY
     Route: 065
  6. LITHIUM [Suspect]
     Indication: SLEEP DISORDER
     Route: 065
  7. LITHIUM [Suspect]
     Indication: AGITATION
     Route: 065
  8. VALPROMIDE [Suspect]
     Indication: ANXIETY
     Route: 065
  9. VALPROMIDE [Suspect]
     Indication: SLEEP DISORDER
     Route: 065
  10. VALPROMIDE [Suspect]
     Indication: AGITATION
     Route: 065
  11. CARBAMATES [Suspect]
     Indication: ANXIETY
     Route: 065
  12. CARBAMATES [Suspect]
     Indication: SLEEP DISORDER
     Route: 065
  13. CARBAMATES [Suspect]
     Indication: AGITATION
     Route: 065
  14. ALIMEMAZINE [Suspect]
     Indication: ANXIETY
     Route: 065
  15. ALIMEMAZINE [Suspect]
     Indication: SLEEP DISORDER
     Route: 065
  16. ALIMEMAZINE [Suspect]
     Indication: AGITATION
     Route: 065
  17. CYAMEMAZINE [Suspect]
     Indication: ANXIETY
     Route: 065
  18. CYAMEMAZINE [Suspect]
     Indication: SLEEP DISORDER
     Route: 065
  19. CYAMEMAZINE [Suspect]
     Indication: AGITATION
     Route: 065

REACTIONS (4)
  - AUTISM SPECTRUM DISORDER [None]
  - DRUG INEFFECTIVE [None]
  - SEDATION [None]
  - WEIGHT INCREASED [None]
